FAERS Safety Report 20544751 (Version 6)
Quarter: 2024Q1

REPORT INFORMATION
  Report Type: Spontaneous
  Country: US (occurrence: US)
  Receive Date: 20220303
  Receipt Date: 20240126
  Transmission Date: 20240410
  Serious: Yes (Hospitalization, Disabling, Other)
  Sender: FDA-Public Use
  Company Number: US-ORGANON-O2203USA000144

PATIENT
  Sex: Female
  Weight: 70.93 kg

DRUGS (6)
  1. SINGULAIR [Suspect]
     Active Substance: MONTELUKAST SODIUM
     Indication: Asthma
     Dosage: 1 TABLET, HS, 5 MG INITIALLY, FOLLOWED BY 10 MG
     Route: 048
     Dates: start: 2002, end: 2013
  2. VENTOLIN HFA [Concomitant]
     Active Substance: ALBUTEROL SULFATE
     Dosage: 2 PUFFS INHALED EVERY 4 HOURS, AS NEEDED
  3. DEPAKOTE [Concomitant]
     Active Substance: DIVALPROEX SODIUM
     Dosage: UNK
  4. ALBUTEROL [Concomitant]
     Active Substance: ALBUTEROL
     Dosage: UNK, PRN
  5. OMEPRAZOLE [Concomitant]
     Active Substance: OMEPRAZOLE
     Dosage: 20 MILLIGRAM, QD
  6. PROAIR HFA [Concomitant]
     Active Substance: ALBUTEROL SULFATE
     Dosage: AS NEEDED

REACTIONS (36)
  - Neuropsychological symptoms [Not Recovered/Not Resolved]
  - Obsessive-compulsive disorder [Not Recovered/Not Resolved]
  - Sleep disorder [Not Recovered/Not Resolved]
  - Intentional self-injury [Recovered/Resolved]
  - Suicide attempt [Unknown]
  - Suicide attempt [Unknown]
  - Suicide attempt [Unknown]
  - Suicidal behaviour [Recovered/Resolved]
  - Anxiety [Not Recovered/Not Resolved]
  - Depression [Not Recovered/Not Resolved]
  - Intentional self-injury [Unknown]
  - Substance use disorder [Not Recovered/Not Resolved]
  - Major depression [Not Recovered/Not Resolved]
  - Borderline personality disorder [Not Recovered/Not Resolved]
  - Feelings of worthlessness [Not Recovered/Not Resolved]
  - Helplessness [Not Recovered/Not Resolved]
  - Generalised anxiety disorder [Unknown]
  - Attention deficit hyperactivity disorder [Unknown]
  - Borderline personality disorder [Unknown]
  - Legal problem [Unknown]
  - Mood swings [Recovering/Resolving]
  - Post-traumatic stress disorder [Recovered/Resolved]
  - Poor quality sleep [Unknown]
  - Disturbance in attention [Unknown]
  - Energy increased [Unknown]
  - Impulsive behaviour [Unknown]
  - Weight decreased [Unknown]
  - Aggression [Unknown]
  - Urinary tract infection [Unknown]
  - Substance-induced mood disorder [Unknown]
  - Nicotine dependence [Unknown]
  - Aggression [Unknown]
  - Anger [Unknown]
  - Irritability [Unknown]
  - Panic attack [Unknown]
  - Affective disorder [Unknown]

NARRATIVE: CASE EVENT DATE: 20030101
